FAERS Safety Report 8520174-0 (Version None)
Quarter: 2012Q3

REPORT INFORMATION
  Report Type: 
  Country: None (occurrence: None)
  Receive Date: 20120719
  Receipt Date: 20120713
  Transmission Date: 20120928
  Serious: Yes (Death)
  Sender: FDA-Public Use
  Company Number: FR-JNJFOC-20120707326

PATIENT

DRUGS (20)
  1. DEXAMETHASONE [Suspect]
     Dosage: FROM DAY 1 TO 4 OF EACH 35 DAYS CYCLE, CYCLE 4
     Route: 065
  2. CHLORAMBUCIL [Suspect]
     Dosage: FROM DAY 20 TO 29 OF EACH 35 DAYS CYCLE, CYCLE 3
     Route: 065
  3. RITUXIMAB [Suspect]
     Indication: MANTLE CELL LYMPHOMA
     Dosage: ON DAY 1 (DAY 8 OF CYCLE 1);EACH CYCLE OF 35 DAYS, CYCLE 1
     Route: 065
  4. RITUXIMAB [Suspect]
     Dosage: ON DAY 1 (DAY 8 OF CYCLE 1); EACH CYCLE OF 35 DAYS, CYCLE 2
     Route: 065
  5. DOXORUBICIN HCL [Suspect]
     Indication: MANTLE CELL LYMPHOMA
     Dosage: AS A CONTINUOUS INFUSION FROM DAY 1 TO 4 EACH CYCLE OF 35 DAYS, CYCLE 1
     Route: 042
  6. DOXORUBICIN HCL [Suspect]
     Dosage: AS A CONTINUOUS INFUSION FROM DAY 1 TO 4; EACH CYCLE OF 35 DAYS, CYCLE 4
     Route: 042
  7. DEXAMETHASONE [Suspect]
     Dosage: FROM DAY 1 TO 4 OF EACH 35 DAYS CYCLE, CYCLE 3
     Route: 065
  8. CHLORAMBUCIL [Suspect]
     Dosage: FROM DAY 20 TO 29 OF EACH 35 DAYS CYCLE, CYCLE 2
     Route: 065
  9. VELCADE [Suspect]
     Dosage: ON DAYS 1, 4, 8 AND 11; EACH CYCLE OF 35 DAYS, CYCLE 4
     Route: 065
  10. VELCADE [Suspect]
     Dosage: ON DAYS 1, 4, 8 AND 11; EACH CYCLE OF 35 DAYS, CYCLE 1
     Route: 065
  11. CHLORAMBUCIL [Suspect]
     Dosage: FROM DAY 20 TO 29 OF EACH 35 DAYS CYCLE, CYCLE 4
     Route: 065
  12. DOXORUBICIN HCL [Suspect]
     Dosage: AS A CONTINUOUS INFUSION FROM DAY 1 TO 4; EACH CYCLE OF 35 DAYS, CYCLE 2
     Route: 042
  13. RITUXIMAB [Suspect]
     Dosage: ON DAY 1 (DAY 8 OF CYCLE 1); EACH CYCLE OF 35 DAYS, CYCLE 4
     Route: 065
  14. VELCADE [Suspect]
     Indication: MANTLE CELL LYMPHOMA
     Dosage: ON DAYS 1, 4, 8 AND 11; EACH CYCLE OF 35 DAYS, CYCLE 3
     Route: 065
  15. DOXORUBICIN HCL [Suspect]
     Dosage: AS A CONTINUOUS INFUSION FROM DAY 1 TO 4; EACH CYCLE OF 35 DAYS, CYCLE 3
     Route: 042
  16. RITUXIMAB [Suspect]
     Dosage: ON DAY 1 (DAY 8 OF CYCLE 1); EACH CYCLE OF 35 DAYS, CYCLE 3
     Route: 065
  17. CHLORAMBUCIL [Suspect]
     Indication: MANTLE CELL LYMPHOMA
     Dosage: FROM DAY 20 TO 29 OF EACH 35 DAYS CYCLE, CYCLE 1
     Route: 065
  18. VELCADE [Suspect]
     Dosage: ON DAYS 1, 4, 8 AND 11; EACH CYCLE OF 35 DAYS, CYCLE 2
     Route: 065
  19. DEXAMETHASONE [Suspect]
     Indication: MANTLE CELL LYMPHOMA
     Dosage: FROM DAY 1 TO 4 OF EACH 35 DAYS CYCLE, CYCLE 1
     Route: 065
  20. DEXAMETHASONE [Suspect]
     Dosage: FROM DAY 1 TO 4 OF EACH 35 DAYS CYCLE, CYCLE 2
     Route: 065

REACTIONS (1)
  - TOXICITY TO VARIOUS AGENTS [None]
